APPROVED DRUG PRODUCT: PINDOLOL
Active Ingredient: PINDOLOL
Strength: 10MG
Dosage Form/Route: TABLET;ORAL
Application: A211712 | Product #002 | TE Code: AB
Applicant: UNICHEM LABORATORIES LTD
Approved: Aug 1, 2019 | RLD: No | RS: No | Type: RX